FAERS Safety Report 6346560-5 (Version None)
Quarter: 2009Q3

REPORT INFORMATION
  Report Type: 
  Country: None (occurrence: None)
  Receive Date: 20090909
  Receipt Date: 20090831
  Transmission Date: 20100115
  Serious: Yes (Hospitalization)
  Sender: FDA-Public Use
  Company Number: AU-ELI_LILLY_AND_COMPANY-AU200908006414

PATIENT
  Sex: Male
  Weight: 75 kg

DRUGS (3)
  1. CYMBALTA [Suspect]
     Indication: DEPRESSION
     Dosage: 60 MG, DAILY (1/D)
     Route: 048
     Dates: start: 20090727, end: 20090903
  2. CLOZAPINE [Concomitant]
     Indication: SCHIZOAFFECTIVE DISORDER
     Dosage: 500 MG, DAILY (1/D)
     Route: 048
     Dates: start: 20090526, end: 20090803
  3. VALPROATE SODIUM [Concomitant]
     Indication: SCHIZOAFFECTIVE DISORDER
     Dosage: 1 G, UNK
     Route: 048
     Dates: end: 20090803

REACTIONS (3)
  - LEUKOPENIA [None]
  - NEUROLEPTIC MALIGNANT SYNDROME [None]
  - NEUTROPENIA [None]
